FAERS Safety Report 8811103 (Version 3)
Quarter: 2014Q4

REPORT INFORMATION
  Report Type: Report from Study
  Country: US (occurrence: US)
  Receive Date: 20120927
  Receipt Date: 20141028
  Transmission Date: 20150529
  Serious: Yes (Hospitalization)
  Sender: FDA-Public Use
  Company Number: US-009507513-1204USA04305

PATIENT
  Age: 65 Year
  Sex: Male
  Weight: 74.84 kg

DRUGS (4)
  1. CYTOXAN [Suspect]
     Active Substance: CYCLOPHOSPHAMIDE
     Indication: PLASMA CELL MYELOMA
     Dosage: 1750 MG, DAY 1 Q 21 DAYS
     Route: 042
     Dates: start: 20111004
  2. DEXAMETHASONE. [Suspect]
     Active Substance: DEXAMETHASONE
     Indication: PLASMA CELL MYELOMA
     Dosage: 40MG, DAYS 2,5,9,12 Q 21 DAYS
     Route: 048
     Dates: start: 20111005
  3. VELCADE [Suspect]
     Active Substance: BORTEZOMIB
     Indication: PLASMA CELL MYELOMA
     Dosage: 2.5 MG, DAYS 1,4,8 AND 11 Q 21 DAYS
     Route: 042
     Dates: start: 20111004
  4. DECADRON [Suspect]
     Active Substance: DEXAMETHASONE
     Indication: PLASMA CELL MYELOMA
     Dosage: 40 MG, DAYS 1,4,8,11 Q 21 DAYS
     Route: 042
     Dates: start: 20111004

REACTIONS (2)
  - Diverticulitis [Recovered/Resolved]
  - Diverticulitis [Unknown]

NARRATIVE: CASE EVENT DATE: 20111121
